FAERS Safety Report 23891466 (Version 2)
Quarter: 2024Q2

REPORT INFORMATION
  Report Type: Report from Study
  Country: CH (occurrence: CH)
  Receive Date: 20240523
  Receipt Date: 20240606
  Transmission Date: 20240716
  Serious: Yes (Other)
  Sender: FDA-Public Use
  Company Number: CH-ABBVIE-5765220

PATIENT
  Sex: Female

DRUGS (4)
  1. CARBIDOPA\LEVODOPA [Suspect]
     Active Substance: CARBIDOPA\LEVODOPA
     Indication: Parkinson^s disease
     Route: 050
     Dates: start: 20100623
  2. CARBIDOPA\LEVODOPA [Suspect]
     Active Substance: CARBIDOPA\LEVODOPA
     Dosage: MD: 3.0 ML, CRD: 2.8 ML/H, ED: 1.0 ML, CRN: 2.5 ML/H, 24H THERAPY
     Route: 050
     Dates: start: 20220601, end: 20221010
  3. CARBIDOPA\LEVODOPA [Suspect]
     Active Substance: CARBIDOPA\LEVODOPA
     Dosage: MD: 3.0 ML, CRD: 3.0 ML/H, ED: 1.0 ML, CRN: 2.4 ML/H, 24H THERAPY
     Route: 050
     Dates: start: 20221117
  4. CARBIDOPA\LEVODOPA [Suspect]
     Active Substance: CARBIDOPA\LEVODOPA
     Dosage: MD: 3.0 ML, CRD: 3.0 ML/H, ED: 1.0 ML, CRN: 2.5 ML/H, 24H THERAPY
     Route: 050
     Dates: start: 20221011, end: 20221116

REACTIONS (5)
  - Unresponsive to stimuli [Not Recovered/Not Resolved]
  - Bedridden [Not Recovered/Not Resolved]
  - Extremity contracture [Not Recovered/Not Resolved]
  - Enteral nutrition [Not Recovered/Not Resolved]
  - Parkinson^s disease [Not Recovered/Not Resolved]
